FAERS Safety Report 18111663 (Version 1)
Quarter: 2020Q3

REPORT INFORMATION
  Report Type: Spontaneous
  Country: US (occurrence: US)
  Receive Date: 20200804
  Receipt Date: 20200804
  Transmission Date: 20201103
  Serious: Yes (Other)
  Sender: FDA-Public Use
  Company Number: US-009507513-1706USA007419

PATIENT
  Sex: Female

DRUGS (5)
  1. STERILE DILUENT (WATER) [Suspect]
     Active Substance: WATER
     Dosage: UNK
     Route: 058
     Dates: start: 20140523, end: 20140523
  2. ZESTRIL [Concomitant]
     Active Substance: LISINOPRIL
     Indication: BLOOD PRESSURE ABNORMAL
     Dosage: 20 MILLIGRAM, QD
     Route: 048
     Dates: start: 2006
  3. ZOSTAVAX [Suspect]
     Active Substance: VARICELLA-ZOSTER VIRUS STRAIN OKA/MERCK LIVE ANTIGEN
     Indication: PROPHYLAXIS
     Dosage: .65 MILLILITER
     Route: 058
     Dates: start: 20140523, end: 20140523
  4. ECOTRIN [Concomitant]
     Active Substance: ASPIRIN
     Indication: CARDIAC DISORDER
     Dosage: 81 MILLIGRAM, QD
     Route: 048
     Dates: start: 1997
  5. ALLOPURINOL. [Concomitant]
     Active Substance: ALLOPURINOL
     Indication: GOUT
     Dosage: 100 MILLIGRAM,  DAILY
     Route: 048
     Dates: start: 2007

REACTIONS (15)
  - Vaccination failure [Unknown]
  - Fatigue [Unknown]
  - Anal fistula [Unknown]
  - Dyspnoea [Unknown]
  - Diarrhoea [Unknown]
  - Osteoarthritis [Unknown]
  - Wheezing [Unknown]
  - Synovitis [Unknown]
  - Cardiac failure congestive [Unknown]
  - Radiculopathy [Unknown]
  - Insomnia [Unknown]
  - Contusion [Unknown]
  - Herpes zoster [Recovered/Resolved]
  - Post herpetic neuralgia [Unknown]
  - Fall [Unknown]

NARRATIVE: CASE EVENT DATE: 2015
